APPROVED DRUG PRODUCT: AMLODIPINE BESYLATE AND BENAZEPRIL HYDROCHLORIDE
Active Ingredient: AMLODIPINE BESYLATE; BENAZEPRIL HYDROCHLORIDE
Strength: EQ 10MG BASE;40MG
Dosage Form/Route: CAPSULE;ORAL
Application: A079047 | Product #002
Applicant: PHARMOBEDIENT CONSULTING LLC
Approved: Jul 5, 2011 | RLD: No | RS: No | Type: DISCN